FAERS Safety Report 22592993 (Version 1)
Quarter: 2023Q2

REPORT INFORMATION
  Report Type: Spontaneous
  Country: CN (occurrence: None)
  Receive Date: 20230613
  Receipt Date: 20230613
  Transmission Date: 20230722
  Serious: Yes (Other)
  Sender: FDA-Public Use
  Company Number: CN-ADIENNEP-2023AD000488

PATIENT
  Sex: Female

DRUGS (11)
  1. THIOTEPA [Suspect]
     Active Substance: THIOTEPA
     Indication: Allogenic stem cell transplantation
     Dosage: 10 MG/KG ON DAY -4
     Dates: start: 201911, end: 201911
  2. THYMOGLOBULIN [Suspect]
     Active Substance: LAPINE T-LYMPHOCYTE IMMUNE GLOBULIN
     Indication: Allogenic stem cell transplantation
     Dosage: 5 MG/KG IN TOTAL FROM DAY -10 TO DAY -8 ()
     Dates: start: 201911, end: 201911
  3. CYCLOPHOSPHAMIDE [Suspect]
     Active Substance: CYCLOPHOSPHAMIDE
     Indication: Allogenic stem cell transplantation
     Dosage: 30 MG/KG ON DAY -7
     Dates: start: 201911, end: 201911
  4. BUSULFAN [Suspect]
     Active Substance: BUSULFAN
     Indication: Allogenic stem cell transplantation
     Dosage: 3.2 MG/KG PER DAY INTRAVENOUSLY FROM DAY -7 TO -5
     Route: 042
     Dates: start: 201911, end: 201911
  5. FLUDARABINE [Suspect]
     Active Substance: FLUDARABINE PHOSPHATE
     Indication: Allogenic stem cell transplantation
     Dosage: 40 MG/M2 PER DAY FROM DAY -6 TO DAY -2
     Dates: start: 201911, end: 201911
  6. RITUXIMAB [Suspect]
     Active Substance: RITUXIMAB
     Indication: Prophylaxis
     Dosage: 375 MG/M2 ON DAY -1
     Dates: start: 201911, end: 201911
  7. CYCLOPHOSPHAMIDE [Concomitant]
     Active Substance: CYCLOPHOSPHAMIDE
     Indication: Prophylaxis against graft versus host disease
     Dosage: 50 MG/KG PER DAY WAS GIVEN ON DAY 3 TO 4
     Dates: start: 201911, end: 201911
  8. MYCOPHENOLATE MOFETIL [Concomitant]
     Active Substance: MYCOPHENOLATE MOFETIL
     Indication: Prophylaxis against graft versus host disease
     Dosage: FROM DAY 5 UNTIL 1 MONTH AFTER THE TRANSPLANT
     Dates: start: 201911
  9. TACROLIMUS [Concomitant]
     Active Substance: TACROLIMUS
     Indication: Prophylaxis against graft versus host disease
     Dosage: ON DAY 5 FOR 3 MONTHS
     Dates: start: 201911
  10. URSODIOL [Suspect]
     Active Substance: URSODIOL
     Indication: Prophylaxis
     Dosage: UNTIL THE END OF THE THIRD MONTH AFTER TRANSPLANT ()
  11. GRANULOCYTE COLONY-STIMULATING FACTOR NOS [Suspect]
     Active Substance: GRANULOCYTE COLONY-STIMULATING FACTOR NOS
     Dosage: ON DAY 0 ()
     Dates: start: 201911, end: 201911

REACTIONS (1)
  - Acute graft versus host disease in skin [Recovered/Resolved]
